FAERS Safety Report 14799564 (Version 1)
Quarter: 2018Q2

REPORT INFORMATION
  Report Type: Spontaneous
  Country: JP (occurrence: JP)
  Receive Date: 20180424
  Receipt Date: 20180424
  Transmission Date: 20180711
  Serious: Yes (Life-Threatening, Hospitalization)
  Sender: FDA-Public Use
  Company Number: JP-CONCORDIA PHARMACEUTICALS INC.-GSH201802-000476

PATIENT
  Age: 81 Year
  Sex: Male

DRUGS (8)
  1. FAD [Concomitant]
  2. MARZULENE [Concomitant]
     Active Substance: SODIUM GUALENATE
  3. VOLTAREN [Concomitant]
     Active Substance: DICLOFENAC SODIUM
  4. ANPLAG [Concomitant]
     Active Substance: SARPOGRELATE
  5. KAYEXALATE [Suspect]
     Active Substance: SODIUM POLYSTYRENE SULFONATE
     Indication: HYPERKALAEMIA
     Route: 048
     Dates: start: 20090730, end: 20090817
  6. MICARDIS [Concomitant]
     Active Substance: TELMISARTAN
  7. MEXILETINE HYDROCHLORIDE. [Concomitant]
     Active Substance: MEXILETINE HYDROCHLORIDE
  8. GOSHAJINKIGAN [Concomitant]
     Active Substance: HERBALS

REACTIONS (4)
  - Disease recurrence [Unknown]
  - Inflammation [Unknown]
  - Large intestine perforation [Recovered/Resolved]
  - Abdominal pain [Unknown]

NARRATIVE: CASE EVENT DATE: 20090822
